FAERS Safety Report 10765695 (Version 1)
Quarter: 2015Q1

REPORT INFORMATION
  Report Type: Spontaneous
  Country: US (occurrence: None)
  Receive Date: 20150204
  Receipt Date: 20150204
  Transmission Date: 20150721
  Serious: No
  Sender: FDA-Public Use
  Company Number: None

PATIENT
  Age: 69 Year
  Sex: Female
  Weight: 65.77 kg

DRUGS (3)
  1. ATORVASTATIN [Suspect]
     Active Substance: ATORVASTATIN
     Indication: BLOOD CHOLESTEROL INCREASED
     Dates: start: 20130709, end: 20140912
  2. ATORVASTATIN [Suspect]
     Active Substance: ATORVASTATIN
     Dates: start: 20130709, end: 20140912
  3. ATORVASTATIN [Suspect]
     Active Substance: ATORVASTATIN
     Indication: ARTERITIS
     Dates: start: 20130709, end: 20140912

REACTIONS (6)
  - Product substitution issue [None]
  - Depression [None]
  - Pain [None]
  - Fatigue [None]
  - Decreased interest [None]
  - Myalgia [None]

NARRATIVE: CASE EVENT DATE: 20141112
